FAERS Safety Report 5349379-7 (Version None)
Quarter: 2007Q2

REPORT INFORMATION
  Report Type: 
  Country: None (occurrence: None)
  Receive Date: 20070607
  Receipt Date: 20070531
  Transmission Date: 20071010
  Serious: No
  Sender: FDA-Public Use
  Company Number: US-ASTRAZENECA-2006UW08141

PATIENT
  Age: 56 Year
  Sex: Female
  Weight: 136.4 kg

DRUGS (5)
  1. SEROQUEL [Suspect]
     Indication: BIPOLAR DISORDER
     Route: 048
     Dates: start: 20050301
  2. SEROQUEL [Suspect]
     Indication: SCHIZOPHRENIA
     Route: 048
     Dates: start: 20050301
  3. ABILIFY [Concomitant]
     Dates: start: 20050101, end: 20060601
  4. GEODON [Concomitant]
     Dates: start: 20040909, end: 20050303
  5. ZYPREXA [Concomitant]
     Dates: start: 20050301

REACTIONS (1)
  - DIABETES MELLITUS [None]
